FAERS Safety Report 22169646 (Version 2)
Quarter: 2023Q2

REPORT INFORMATION
  Report Type: Spontaneous
  Country: US (occurrence: US)
  Receive Date: 20230404
  Receipt Date: 20230417
  Transmission Date: 20230721
  Serious: Yes (Other)
  Sender: FDA-Public Use
  Company Number: US-002147023-NVSC2023US076454

PATIENT
  Age: 78 Year
  Sex: Male

DRUGS (4)
  1. BEOVU [Suspect]
     Active Substance: BROLUCIZUMAB-DBLL
     Indication: Age-related macular degeneration
     Dosage: LOADING DOSE, RIGHT EYE, OD, TIME PERIOD OF 40
     Route: 065
     Dates: start: 20200928
  2. BEOVU [Suspect]
     Active Substance: BROLUCIZUMAB-DBLL
     Dosage: LOADING DOSE, RIGHT EYE, OD, TIME PERIOD OF 35
     Route: 065
     Dates: start: 20201102
  3. BEOVU [Suspect]
     Active Substance: BROLUCIZUMAB-DBLL
     Dosage: LOADING DOSE, RIGHT EYE, OD, TIME PERIOD OF 28
     Route: 065
     Dates: start: 20201130
  4. BEOVU [Suspect]
     Active Substance: BROLUCIZUMAB-DBLL
     Dosage: LOADING DOSE IN RIGHT EYE
     Route: 065
     Dates: start: 20210125

REACTIONS (3)
  - Iridocyclitis [Recovered/Resolved]
  - Iritis [Unknown]
  - Vitreous floaters [Unknown]

NARRATIVE: CASE EVENT DATE: 20201202
